FAERS Safety Report 21882487 (Version 1)
Quarter: 2023Q1

REPORT INFORMATION
  Report Type: Report from Study
  Country: US (occurrence: US)
  Receive Date: 20230119
  Receipt Date: 20230119
  Transmission Date: 20230417
  Serious: Yes (Hospitalization)
  Sender: FDA-Public Use
  Company Number: US-Accord-261163

PATIENT
  Age: 62 Year
  Sex: Female
  Weight: 65.30 kg

DRUGS (5)
  1. CLOZAPINE [Suspect]
     Active Substance: CLOZAPINE
     Indication: Schizoaffective disorder
     Dosage: DOSE: 100MG/AT BEDTIME
     Dates: start: 202111
  2. ATORVASTATIN CALCIUM [Concomitant]
     Active Substance: ATORVASTATIN CALCIUM
     Dosage: 5MG/ORAL ONCE A DAY
  3. CALCITRIOL [Concomitant]
     Active Substance: CALCITRIOL
     Dosage: 1MG /DAILY
  4. LEVOTHYROXINE [Concomitant]
     Active Substance: LEVOTHYROXINE
     Dosage: LEVOTHYROXINE
  5. SEVELAMER [Concomitant]
     Active Substance: SEVELAMER
     Dosage: 0.8GM / 3 TIMES DAILY WITH MEALS

REACTIONS (2)
  - Nausea [Not Recovered/Not Resolved]
  - Vomiting [Not Recovered/Not Resolved]

NARRATIVE: CASE EVENT DATE: 20220413
